FAERS Safety Report 11850661 (Version 2)
Quarter: 2016Q1

REPORT INFORMATION
  Report Type: Spontaneous
  Country: US (occurrence: US)
  Receive Date: 20151218
  Receipt Date: 20160203
  Transmission Date: 20160526
  Serious: No
  Sender: FDA-Public Use
  Company Number: US-JNJFOC-20151123620

PATIENT
  Sex: Male
  Weight: 72.58 kg

DRUGS (20)
  1. INVEGA SUSTENNA [Suspect]
     Active Substance: PALIPERIDONE PALMITATE
     Indication: PSYCHOTIC DISORDER
     Route: 030
     Dates: start: 20151022
  2. INVEGA SUSTENNA [Suspect]
     Active Substance: PALIPERIDONE PALMITATE
     Indication: PSYCHOTIC DISORDER
     Route: 030
     Dates: start: 20150826
  3. INVEGA SUSTENNA [Suspect]
     Active Substance: PALIPERIDONE PALMITATE
     Indication: PSYCHOTIC DISORDER
     Route: 030
     Dates: start: 20150921
  4. DIAZEPAM. [Concomitant]
     Active Substance: DIAZEPAM
     Indication: BRUXISM
     Route: 065
     Dates: start: 20151022, end: 20151123
  5. DIAZEPAM. [Concomitant]
     Active Substance: DIAZEPAM
     Indication: EXTRAPYRAMIDAL DISORDER
     Dosage: 5 MG EVERY DAY BEFORE NOON??10 MG EVERY NIGHT AT BEDTIME
     Route: 065
     Dates: start: 20151123
  6. INVEGA SUSTENNA [Suspect]
     Active Substance: PALIPERIDONE PALMITATE
     Indication: BIPOLAR I DISORDER
     Route: 030
     Dates: start: 20151022
  7. BENZOTROPINE [Concomitant]
     Active Substance: BENZTROPINE
     Indication: EXTRAPYRAMIDAL DISORDER
     Route: 065
     Dates: start: 20150818, end: 20150902
  8. INVEGA SUSTENNA [Suspect]
     Active Substance: PALIPERIDONE PALMITATE
     Indication: BIPOLAR I DISORDER
     Route: 030
     Dates: start: 20150826
  9. DIAZEPAM. [Concomitant]
     Active Substance: DIAZEPAM
     Indication: BRUXISM
     Dosage: 5 MG EVERY DAY BEFORE NOON??10 MG EVERY NIGHT AT BEDTIME
     Route: 065
     Dates: start: 20151123
  10. REMERON [Concomitant]
     Active Substance: MIRTAZAPINE
     Dosage: EVERY DAY AT BEDTIME
     Route: 065
     Dates: start: 20150913, end: 20150921
  11. INVEGA SUSTENNA [Suspect]
     Active Substance: PALIPERIDONE PALMITATE
     Indication: PSYCHOTIC DISORDER
     Route: 030
  12. INVEGA SUSTENNA [Suspect]
     Active Substance: PALIPERIDONE PALMITATE
     Indication: BIPOLAR I DISORDER
     Route: 030
     Dates: start: 20151123
  13. INVEGA SUSTENNA [Suspect]
     Active Substance: PALIPERIDONE PALMITATE
     Indication: PSYCHOTIC DISORDER
     Route: 030
     Dates: start: 20151123
  14. INVEGA SUSTENNA [Suspect]
     Active Substance: PALIPERIDONE PALMITATE
     Indication: BIPOLAR I DISORDER
     Route: 030
     Dates: start: 20150921
  15. INVEGA SUSTENNA [Suspect]
     Active Substance: PALIPERIDONE PALMITATE
     Indication: BIPOLAR I DISORDER
     Route: 030
  16. BENZOTROPINE [Concomitant]
     Active Substance: BENZTROPINE
     Indication: EXTRAPYRAMIDAL DISORDER
     Route: 065
     Dates: start: 20150814, end: 20150818
  17. SIMVASTATIN. [Concomitant]
     Active Substance: SIMVASTATIN
     Indication: BLOOD CHOLESTEROL
     Route: 048
  18. DIAZEPAM. [Concomitant]
     Active Substance: DIAZEPAM
     Indication: BRUXISM
     Dosage: EVERY NIGHT AT BEDTIME
     Route: 065
     Dates: start: 20151001, end: 20151022
  19. DIAZEPAM. [Concomitant]
     Active Substance: DIAZEPAM
     Indication: EXTRAPYRAMIDAL DISORDER
     Dosage: EVERY NIGHT AT BEDTIME
     Route: 065
     Dates: start: 20151001, end: 20151022
  20. DIAZEPAM. [Concomitant]
     Active Substance: DIAZEPAM
     Indication: EXTRAPYRAMIDAL DISORDER
     Route: 065
     Dates: start: 20151022, end: 20151123

REACTIONS (3)
  - Anxiety [Unknown]
  - Bruxism [Not Recovered/Not Resolved]
  - Akathisia [Recovering/Resolving]
